FAERS Safety Report 7533459-1 (Version None)
Quarter: 2011Q2

REPORT INFORMATION
  Report Type: 
  Country: None (occurrence: None)
  Receive Date: 20110608
  Receipt Date: 20110527
  Transmission Date: 20111010
  Serious: Yes (Hospitalization, Other)
  Sender: FDA-Public Use
  Company Number: PHEH2010US03389

PATIENT
  Sex: Female

DRUGS (17)
  1. BENADRYL ^ACHE^ [Concomitant]
  2. PREVACID [Concomitant]
  3. DULOXETINE HYDROCHLORIDE [Concomitant]
  4. CLARITIN [Concomitant]
  5. NAPROXEN [Concomitant]
  6. ZYRTEC [Concomitant]
  7. CIPROFLOXACIN [Concomitant]
  8. SINGULAIR [Concomitant]
  9. LEVAQUIN [Concomitant]
  10. LISINOPRIL [Concomitant]
  11. NOVOLIN 70/30 [Concomitant]
  12. PENICILLIN NOS [Concomitant]
  13. PREDNISONE [Concomitant]
  14. LORTAB [Concomitant]
  15. ZELNORM [Suspect]
     Indication: IRRITABLE BOWEL SYNDROME
     Dosage: UNK
     Route: 048
  16. BACTRIM [Concomitant]
  17. COREG [Concomitant]

REACTIONS (11)
  - ABDOMINAL PAIN [None]
  - SYSTEMIC LUPUS ERYTHEMATOSUS [None]
  - ARTHRALGIA [None]
  - CHEST PAIN [None]
  - PALPITATIONS [None]
  - CEREBROVASCULAR ACCIDENT [None]
  - DYSPNOEA [None]
  - CARDIAC DISORDER [None]
  - CARDIOMYOPATHY [None]
  - INJURY [None]
  - EJECTION FRACTION [None]
